FAERS Safety Report 6283455-X (Version None)
Quarter: 2009Q3

REPORT INFORMATION
  Report Type: 
  Country: None (occurrence: None)
  Receive Date: 20090721
  Receipt Date: 20090721
  Transmission Date: 20100115
  Serious: Yes (Other)
  Sender: FDA-Public Use
  Company Number: None

PATIENT
  Age: 40 Year
  Sex: Female
  Weight: 60.782 kg

DRUGS (2)
  1. SAVELLA [Suspect]
     Indication: CHRONIC FATIGUE SYNDROME
     Dosage: 12.5 MG ONCE PO
     Route: 048
     Dates: start: 20090715, end: 20090716
  2. SAVELLA [Suspect]
     Indication: FIBROMYALGIA
     Dosage: 12.5 MG ONCE PO
     Route: 048
     Dates: start: 20090715, end: 20090716

REACTIONS (3)
  - HEADACHE [None]
  - NAUSEA [None]
  - VOMITING [None]
